FAERS Safety Report 15392997 (Version 3)
Quarter: 2018Q3

REPORT INFORMATION
  Report Type: Spontaneous
  Country: GB (occurrence: GB)
  Receive Date: 20180917
  Receipt Date: 20180928
  Transmission Date: 20181010
  Serious: Yes (Death, Other)
  Sender: FDA-Public Use
  Company Number: GB-009507513-1809GBR006131

PATIENT
  Age: 37 Year
  Sex: Female

DRUGS (6)
  1. MIRTAZAPINE. [Suspect]
     Active Substance: MIRTAZAPINE
  2. PREGABALIN. [Suspect]
     Active Substance: PREGABALIN
     Dosage: UNK
  3. MORPHINE SULFATE. [Suspect]
     Active Substance: MORPHINE SULFATE
  4. COCAINE [Suspect]
     Active Substance: COCAINE
  5. CODEINE [Suspect]
     Active Substance: CODEINE
  6. OXYCODONE [Suspect]
     Active Substance: OXYCODONE

REACTIONS (2)
  - Cardiac arrest [Fatal]
  - Toxicity to various agents [Fatal]
